FAERS Safety Report 12491680 (Version 5)
Quarter: 2017Q1

REPORT INFORMATION
  Report Type: Spontaneous
  Country: US (occurrence: US)
  Receive Date: 20160623
  Receipt Date: 20170104
  Transmission Date: 20170428
  Serious: No
  Sender: FDA-Public Use
  Company Number: US-PFIZER INC-2016300953

PATIENT

DRUGS (1)
  1. SODIUM BICARBONATE. [Suspect]
     Active Substance: SODIUM BICARBONATE
     Dosage: 84 MG IN 1 ML

REACTIONS (4)
  - Laceration [Unknown]
  - Product quality issue [Unknown]
  - Accident at work [Unknown]
  - Accidental exposure to product [Unknown]
